FAERS Safety Report 9339005 (Version 2)
Quarter: 2013Q2

REPORT INFORMATION
  Report Type: Spontaneous
  Country: US (occurrence: US)
  Receive Date: 20130610
  Receipt Date: 20130619
  Transmission Date: 20140414
  Serious: Yes (Hospitalization, Other)
  Sender: FDA-Public Use
  Company Number: US-ELI_LILLY_AND_COMPANY-US201306000336

PATIENT
  Age: 83 Year
  Sex: Female

DRUGS (3)
  1. HUMALOG LISPRO [Suspect]
     Indication: TYPE 2 DIABETES MELLITUS
     Dosage: UNK
     Dates: start: 2005
  2. HUMALOG LISPRO [Suspect]
     Dosage: UNK UNK, TID
  3. HUMALOG LISPRO [Suspect]
     Dosage: UNK, TID

REACTIONS (5)
  - Heart rate increased [Recovered/Resolved]
  - Blood pressure increased [Recovered/Resolved]
  - Breast cancer [Unknown]
  - Chest discomfort [Unknown]
  - Blood glucose increased [Unknown]
